FAERS Safety Report 7366866-0 (Version None)
Quarter: 2011Q1

REPORT INFORMATION
  Report Type: 
  Country: None (occurrence: None)
  Receive Date: 20110322
  Receipt Date: 20110314
  Transmission Date: 20110831
  Serious: Yes (Hospitalization)
  Sender: FDA-Public Use
  Company Number: A0892430A

PATIENT
  Age: 55 Year
  Sex: Male

DRUGS (11)
  1. GLUCOTROL [Concomitant]
  2. ALLOPURINOL [Concomitant]
  3. ASPIRIN [Concomitant]
  4. FISH OIL [Concomitant]
  5. AVANDIA [Suspect]
     Dosage: 4MG PER DAY
     Route: 048
     Dates: start: 20070916, end: 20100401
  6. ZETIA [Concomitant]
  7. METOPROLOL [Concomitant]
  8. LOVAZA [Concomitant]
  9. JANUVIA [Concomitant]
  10. SIMVASTATIN [Concomitant]
  11. GLUCOPHAGE [Concomitant]

REACTIONS (3)
  - ANGINA UNSTABLE [None]
  - HYPOAESTHESIA [None]
  - CORONARY ARTERY DISEASE [None]
